FAERS Safety Report 10556814 (Version 1)
Quarter: 2014Q4

REPORT INFORMATION
  Report Type: Spontaneous
  Country: BE (occurrence: BE)
  Receive Date: 20141031
  Receipt Date: 20141031
  Transmission Date: 20150529
  Serious: Yes (Hospitalization)
  Sender: FDA-Public Use
  Company Number: BE-JNJFOC-20141014275

PATIENT
  Age: 14 Year
  Sex: Female
  Weight: 65 kg

DRUGS (2)
  1. RILATINE [Suspect]
     Active Substance: METHYLPHENIDATE HYDROCHLORIDE
     Indication: PRODUCT USED FOR UNKNOWN INDICATION
     Route: 048
     Dates: start: 20100101, end: 20140201
  2. CONCERTA [Suspect]
     Active Substance: METHYLPHENIDATE HYDROCHLORIDE
     Indication: PRODUCT USED FOR UNKNOWN INDICATION
     Route: 048
     Dates: start: 20140201, end: 20140715

REACTIONS (1)
  - Temporal lobe epilepsy [Not Recovered/Not Resolved]

NARRATIVE: CASE EVENT DATE: 20140801
